FAERS Safety Report 4520605-7 (Version None)
Quarter: 2004Q4

REPORT INFORMATION
  Report Type: 
  Country: None (occurrence: None)
  Receive Date: 20041203
  Receipt Date: 20041122
  Transmission Date: 20050328
  Serious: Yes (Other)
  Sender: FDA-Public Use
  Company Number: 2004-BP-12196BP

PATIENT
  Age: 31 Year
  Sex: Male

DRUGS (3)
  1. VIRAMUNE [Suspect]
     Indication: HIV INFECTION
     Dosage: (200 MG), PO
     Route: 048
     Dates: start: 20040309
  2. DIDANOSINE [Suspect]
     Indication: HIV INFECTION
     Dates: start: 20040309
  3. ZIDOVUDINE [Suspect]
     Indication: HIV INFECTION
     Dates: start: 20040309

REACTIONS (1)
  - BLOOD AMYLASE INCREASED [None]
